FAERS Safety Report 25637730 (Version 1)
Quarter: 2025Q3

REPORT INFORMATION
  Report Type: Report from Study
  Country: ZA (occurrence: ZA)
  Receive Date: 20250804
  Receipt Date: 20250804
  Transmission Date: 20251020
  Serious: Yes (Hospitalization)
  Sender: ALEXION PHARMACEUTICALS
  Company Number: ZA-AstraZeneca-CH-00920142A

PATIENT
  Age: 56 Year
  Sex: Female

DRUGS (7)
  1. BUDESONIDE\FORMOTEROL [Suspect]
     Active Substance: BUDESONIDE\FORMOTEROL
     Indication: Asthma
  2. Azathioprine pch [Concomitant]
     Indication: Crohn^s disease
  3. CHLOROQUINE SULFATE [Concomitant]
     Active Substance: CHLOROQUINE SULFATE
     Indication: Malaria
  4. FOLIC ACID [Concomitant]
     Active Substance: FOLIC ACID
     Indication: Coronary artery disease
  5. PROPRANOLOL HYDROCHLORIDE [Concomitant]
     Active Substance: PROPRANOLOL HYDROCHLORIDE
     Indication: Hypertension
  6. MYSOLINE [Concomitant]
     Active Substance: PRIMIDONE
     Indication: Epilepsy
  7. LEVETIRACETAM [Concomitant]
     Active Substance: LEVETIRACETAM
     Indication: Epilepsy

REACTIONS (1)
  - Diabetes mellitus [Unknown]
